FAERS Safety Report 6164637-4 (Version None)
Quarter: 2009Q2

REPORT INFORMATION
  Report Type: 
  Country: None (occurrence: None)
  Receive Date: 20090421
  Receipt Date: 20090408
  Transmission Date: 20091009
  Serious: Yes (Death, Other)
  Sender: FDA-Public Use
  Company Number: 2008SP022499

PATIENT
  Age: 77 Year
  Sex: Male

DRUGS (2)
  1. INTERFERON ALFA-2B RECOMBITANT (S-P) (INTERFERON ALFA-2B) [Suspect]
     Indication: RENAL CANCER
  2. SINITINIB (PROTEASE INHIBITORS) [Suspect]
     Indication: DRUG USE FOR UNKNOWN INDICATION

REACTIONS (25)
  - ABDOMINAL MASS [None]
  - AGITATION [None]
  - CIRCULATORY COLLAPSE [None]
  - CONFUSIONAL STATE [None]
  - DIARRHOEA [None]
  - DISEASE PROGRESSION [None]
  - DRUG INTOLERANCE [None]
  - DRUG THERAPY CHANGED [None]
  - FACE OEDEMA [None]
  - GENERAL PHYSICAL HEALTH DETERIORATION [None]
  - HYPOVENTILATION [None]
  - INCONTINENCE [None]
  - LOWER RESPIRATORY TRACT INFECTION [None]
  - MOUTH ULCERATION [None]
  - MUSCLE ATROPHY [None]
  - ORAL CANDIDIASIS [None]
  - OROPHARYNGEAL PAIN [None]
  - PALLOR [None]
  - PETECHIAE [None]
  - PNEUMONIA ASPIRATION [None]
  - REFUSAL OF TREATMENT BY PATIENT [None]
  - RENAL CANCER [None]
  - RESPIRATORY RATE DECREASED [None]
  - SOMNOLENCE [None]
  - URINE ODOUR ABNORMAL [None]
